FAERS Safety Report 25971355 (Version 1)
Quarter: 2025Q4

REPORT INFORMATION
  Report Type: Report from Study
  Country: US (occurrence: US)
  Receive Date: 20251028
  Receipt Date: 20251028
  Transmission Date: 20260118
  Serious: Yes (Other)
  Sender: ABBVIE
  Company Number: US-ABBVIE-6515335

PATIENT
  Age: 81 Year
  Sex: Female

DRUGS (1)
  1. HUMIRA [Suspect]
     Active Substance: ADALIMUMAB
     Indication: Psoriatic arthropathy
     Dosage: DOSE FORM: SOLUTION FOR INJECTION IN PRE-FILLED PEN
     Route: 058
     Dates: start: 20080101

REACTIONS (12)
  - Mobility decreased [Unknown]
  - Spinal fracture [Unknown]
  - Joint range of motion decreased [Unknown]
  - Accident [Recovering/Resolving]
  - Fall [Not Recovered/Not Resolved]
  - Back injury [Unknown]
  - Head injury [Unknown]
  - Limb injury [Unknown]
  - Buttock injury [Unknown]
  - Limb injury [Unknown]
  - Hallucination, visual [Unknown]
  - Pain [Unknown]

NARRATIVE: CASE EVENT DATE: 20251001
